FAERS Safety Report 9599267 (Version 1)
Quarter: 2013Q4

REPORT INFORMATION
  Report Type: Spontaneous
  Country: US (occurrence: US)
  Receive Date: 20131004
  Receipt Date: 20131004
  Transmission Date: 20140711
  Serious: No
  Sender: FDA-Public Use
  Company Number: US-AMGEN-USASP2013028773

PATIENT
  Age: 49 Year
  Sex: Female
  Weight: 68.03 kg

DRUGS (9)
  1. ENBREL [Suspect]
     Indication: PRODUCT USED FOR UNKNOWN INDICATION
     Dosage: 50 MG, QWK
     Route: 058
  2. METHOTREXATE [Concomitant]
     Dosage: 2.5 MG, UNK
     Route: 048
  3. FOLIC ACID [Concomitant]
     Dosage: UNK
     Route: 048
  4. COREG [Concomitant]
     Dosage: 25 MG, UNK
     Route: 048
  5. ZOLOFT [Concomitant]
     Dosage: 25 MG, UNK
     Route: 048
  6. D3 [Concomitant]
     Dosage: 1000 UNIT, UNK
     Route: 048
  7. FISH OIL [Concomitant]
     Dosage: UNK
     Route: 048
  8. MAGNESIUM [Concomitant]
     Dosage: 400 MG, UNK
     Route: 048
  9. COZAAR [Concomitant]
     Dosage: 25 MG, UNK
     Route: 048

REACTIONS (1)
  - Sinus congestion [Unknown]
